FAERS Safety Report 4533324-8 (Version None)
Quarter: 2004Q4

REPORT INFORMATION
  Report Type: 
  Country: None (occurrence: None)
  Receive Date: 20041210
  Receipt Date: 20040824
  Transmission Date: 20050328
  Serious: Yes (Other)
  Sender: FDA-Public Use
  Company Number: A03200402909

PATIENT
  Age: 78 Year
  Sex: Female

DRUGS (4)
  1. ELOXATIN [Suspect]
     Indication: COLON CANCER
     Dosage: N INTRAVENOUS NOS
     Route: 042
  2. ELOXATIN [Suspect]
     Indication: METASTASES TO LIVER
     Dosage: N INTRAVENOUS NOS
     Route: 042
  3. FLUOROURACIL [Concomitant]
  4. LEUCOVORIN CALCIUM [Concomitant]

REACTIONS (2)
  - NEUROPATHY [None]
  - NEUTROPENIA [None]
